FAERS Safety Report 8642921 (Version 3)
Quarter: 2012Q4

REPORT INFORMATION
  Report Type: Spontaneous
  Country: US (occurrence: None)
  Receive Date: 20120620
  Receipt Date: 20120831
  Transmission Date: 20130627
  Serious: Yes (Death)
  Sender: FDA-Public Use
  Company Number: ADR-UNK-062

PATIENT
  Age: 0 Year

DRUGS (2)
  1. LAMIVUDINE\ZIDOVUDINE [Suspect]
     Indication: ACQUIRED IMMUNODEFICIENCY SYNDROME
     Dosage: 1COURSE 2 TAB/CAPS/ORAL
     Route: 048
     Dates: start: 20110324
  2. LOPINAVIR\RITONAVIR [Concomitant]

REACTIONS (3)
  - Maternal drugs affecting foetus [None]
  - Premature baby [None]
  - Stillbirth [None]
